FAERS Safety Report 8409312 (Version 2)
Quarter: 2012Q4

REPORT INFORMATION
  Report Type: 
  Country: US (occurrence: US)
  Receive Date: 20120216
  Receipt Date: 20121102
  Transmission Date: 20130627
  Serious: Yes (Death, Other)
  Sender: FDA-Public Use
  Company Number: US-BAYER-2012-015309

PATIENT
  Age: 51 Year
  Sex: Female

DRUGS (31)
  1. TRASYLOL [Suspect]
     Indication: CORONARY ARTERY BYPASS GRAFT
     Dosage: Test dose: 1mL followed by 200mL pump prime
     Route: 042
     Dates: start: 20050622, end: 20050622
  2. TRASYLOL [Suspect]
     Indication: MITRAL VALVE REPLACEMENT
     Dosage: Loading dose: 200mL load followed by 50/mL hour continuous infusion
     Dates: start: 20050622, end: 20050622
  3. NORVASC [Concomitant]
  4. LASIX [Concomitant]
  5. POTASSIUM [Concomitant]
  6. SEVOFLURANE [Concomitant]
     Dosage: UNK
     Dates: start: 20050622, end: 20050622
  7. VERSED [Concomitant]
     Dosage: UNK
     Dates: start: 20050622, end: 20050622
  8. SUFENTA [Concomitant]
     Dosage: UNK
     Dates: start: 20050622, end: 20050622
  9. PAVULON [Concomitant]
     Dosage: UNK
     Dates: start: 20050622, end: 20050622
  10. VECURONIUM [Concomitant]
     Dosage: UNK
     Dates: start: 20050622, end: 20050622
  11. ANCEF [Concomitant]
     Dosage: UNK
     Dates: start: 20050622, end: 20050622
  12. HEPARIN [Concomitant]
     Dosage: UNK
     Dates: start: 20050622, end: 20050622
  13. VASOPRESSIN [Concomitant]
     Dosage: UNK
     Dates: start: 20050622
  14. EPINEPHRINE [Concomitant]
     Dosage: UNK
     Dates: start: 20050622
  15. PROCRIT [Concomitant]
     Dosage: UNK
     Dates: start: 20050622, end: 20050622
  16. ZEMURON [Concomitant]
     Dosage: UNK
     Dates: start: 20050622, end: 20050622
  17. AMIODARONE [Concomitant]
     Dosage: UNK
     Dates: start: 20050622, end: 20050622
  18. INSULIN [Concomitant]
     Dosage: UNK
     Dates: start: 20050622, end: 20050622
  19. MILRINONE [Concomitant]
     Dosage: UNK
     Dates: start: 20050622
  20. LIDOCAINE [Concomitant]
     Dosage: UNK
     Dates: start: 20050622, end: 20050622
  21. MAGNESIUM SULFATE [Concomitant]
     Dosage: UNK
     Dates: start: 20050622, end: 20050622
  22. MANNITOL [Concomitant]
     Dosage: UNK
     Dates: start: 20050622, end: 20050622
  23. SODIUM BICARBONATE [Concomitant]
     Dosage: UNK
     Dates: start: 20050622, end: 20050622
  24. CARDIOPLEGIA [Concomitant]
     Dosage: UNK
     Dates: start: 20050622, end: 20050622
  25. NEOSYNEPHRINE [Concomitant]
     Dosage: UNK
     Dates: start: 20050622
  26. CALCIUM CHLORIDE [Concomitant]
     Dosage: UNK
     Dates: start: 20050622, end: 20050622
  27. PACKED RED BLOOD CELLS [Concomitant]
  28. PLASMA [Concomitant]
  29. PLATELETS, HUMAN BLOOD [Concomitant]
  30. CELL SAVER [Concomitant]
  31. CRYOPRECIPITATE [Concomitant]

REACTIONS (3)
  - Death [Fatal]
  - Renal failure acute [None]
  - Multi-organ failure [None]
